FAERS Safety Report 10935578 (Version 2)
Quarter: 2015Q2

REPORT INFORMATION
  Report Type: Spontaneous
  Country: AT (occurrence: AT)
  Receive Date: 20150320
  Receipt Date: 20150610
  Transmission Date: 20150821
  Serious: Yes (Hospitalization)
  Sender: FDA-Public Use
  Company Number: AT-BAYER-2015-036803

PATIENT
  Age: 77 Year
  Sex: Male

DRUGS (10)
  1. DIGIMERCK [Concomitant]
     Active Substance: DIGITOXIN
  2. SERETIDE [Concomitant]
     Active Substance: FLUTICASONE FUROATE\SALMETEROL XINAFOATE
  3. SPIRONO [Concomitant]
  4. TORASEMID [Concomitant]
     Active Substance: TORSEMIDE
  5. TROMCARDIN [Concomitant]
     Active Substance: MAGNESIUM ASPARTATE\POTASSIUM ASPARTATE
  6. PANTOPRAZOLE [Concomitant]
     Active Substance: PANTOPRAZOLE SODIUM
  7. NEBIVOLOL [Concomitant]
     Active Substance: NEBIVOLOL
  8. SIMVASTATIN. [Concomitant]
     Active Substance: SIMVASTATIN
  9. ADEMPAS [Suspect]
     Active Substance: RIOCIGUAT
     Indication: PULMONARY HYPERTENSION
     Dosage: 1.5 MG, TID
     Dates: start: 20150207
  10. MARCOUMAR [Concomitant]
     Active Substance: PHENPROCOUMON

REACTIONS (2)
  - Hyperthermia [Recovered/Resolved]
  - Erythema [Recovered/Resolved]

NARRATIVE: CASE EVENT DATE: 20150306
